FAERS Safety Report 5495287-0 (Version None)
Quarter: 2007Q4

REPORT INFORMATION
  Report Type: 
  Country: None (occurrence: None)
  Receive Date: 20071024
  Receipt Date: 20071012
  Transmission Date: 20080405
  Serious: Yes (Hospitalization)
  Sender: FDA-Public Use
  Company Number: US-PFIZER INC-2007085504

PATIENT
  Sex: Male
  Weight: 122 kg

DRUGS (3)
  1. SUTENT [Suspect]
     Indication: METASTATIC RENAL CELL CARCINOMA
     Route: 048
     Dates: start: 20051223
  2. FLEXERIL [Concomitant]
     Route: 048
  3. DARVOCET [Concomitant]
     Route: 048

REACTIONS (3)
  - ABDOMINAL PAIN [None]
  - ENTEROVESICAL FISTULA [None]
  - HYPERCALCAEMIA [None]
